FAERS Safety Report 16425954 (Version 1)
Quarter: 2019Q2

REPORT INFORMATION
  Report Type: Spontaneous
  Country: US (occurrence: US)
  Receive Date: 20190506
  Receipt Date: 20190506
  Transmission Date: 20190711
  Serious: No
  Sender: FDA-Public Use
  Company Number: None

PATIENT
  Sex: Male

DRUGS (2)
  1. TACROLIMUS (ACCORD) 1MG  ACCORD HEALTHCARE [Suspect]
     Active Substance: TACROLIMUS
     Indication: RENAL TRANSPLANT
     Route: 048
     Dates: start: 20150421
  2. TACROLIMUS (ACCORD) 0.5MG ACCORD HEALTHCARE [Suspect]
     Active Substance: TACROLIMUS
     Indication: FOOD ALLERGY
     Dosage: ?          OTHER DOSE:0.5 MG;?
     Route: 048
     Dates: start: 20150421

REACTIONS (5)
  - Pyrexia [None]
  - Mental disorder [None]
  - Nausea [None]
  - Chills [None]
  - Vomiting [None]
